FAERS Safety Report 8169362-6 (Version None)
Quarter: 2012Q1

REPORT INFORMATION
  Report Type: 
  Country: None (occurrence: None)
  Receive Date: 20120222
  Receipt Date: 20120208
  Transmission Date: 20120608
  Serious: Yes (Other)
  Sender: FDA-Public Use
  Company Number: AUR-APL-2012-01049

PATIENT
  Age: 31 Year
  Sex: Female

DRUGS (2)
  1. METFORMIN HCL [Suspect]
     Indication: POLYCYSTIC OVARIES
     Dosage: 1500 MG, 1 D
     Dates: start: 20110501
  2. CHANTIX [Suspect]
     Indication: SMOKING CESSATION THERAPY
     Dosage: 0.5 MG, 1 D, ORAL
     Route: 048
     Dates: start: 20110202

REACTIONS (3)
  - WEIGHT DECREASED [None]
  - HEADACHE [None]
  - URTICARIA [None]
